FAERS Safety Report 10094651 (Version 2)
Quarter: 2014Q2

REPORT INFORMATION
  Report Type: Spontaneous
  Country: US (occurrence: None)
  Receive Date: 20140418
  Receipt Date: 20140515
  Transmission Date: 20141212
  Serious: No
  Sender: FDA-Public Use
  Company Number: 2014-US-004454

PATIENT
  Age: 25 Year
  Sex: Female

DRUGS (7)
  1. XYREM (SODIUM OXYBATE) ORAL SOLUTION, 500MG/ML [Suspect]
     Indication: NARCOLEPSY
     Route: 048
     Dates: start: 20140326, end: 2014
  2. XYREM (SODIUM OXYBATE) ORAL SOLUTION, 500MG/ML [Suspect]
     Indication: CATAPLEXY
     Route: 048
     Dates: start: 20140326, end: 2014
  3. PROVIGIL (MODAFINIL) [Concomitant]
  4. PAXIL (PAROXETINE HYDROCHLORIDE) [Concomitant]
  5. ZOFRAN (ONDANSETRON) [Concomitant]
  6. REMICADE (INFLIXIMAB) [Concomitant]
  7. OMEPRAZOLE (OMEPRAZOLE) [Concomitant]

REACTIONS (4)
  - Colitis ulcerative [None]
  - Vertigo [None]
  - Disorientation [None]
  - Dysphagia [None]
